FAERS Safety Report 19115412 (Version 1)
Quarter: 2021Q2

REPORT INFORMATION
  Report Type: Spontaneous
  Country: FR (occurrence: FR)
  Receive Date: 20210409
  Receipt Date: 20210409
  Transmission Date: 20210717
  Serious: Yes (Hospitalization)
  Sender: FDA-Public Use
  Company Number: FR-PFIZER INC-2021369211

PATIENT
  Age: 52 Year
  Sex: Female
  Weight: 56 kg

DRUGS (1)
  1. XELJANZ [Suspect]
     Active Substance: TOFACITINIB CITRATE
     Indication: COLITIS
     Dosage: 20 MG, 1X/DAY
     Route: 048
     Dates: start: 20201113, end: 20201215

REACTIONS (2)
  - Off label use [Unknown]
  - Septic shock [Recovered/Resolved]

NARRATIVE: CASE EVENT DATE: 20201113
